FAERS Safety Report 4677724-4 (Version None)
Quarter: 2005Q2

REPORT INFORMATION
  Report Type: 
  Country: None (occurrence: None)
  Receive Date: 20050527
  Receipt Date: 20050518
  Transmission Date: 20051028
  Serious: Yes (Death)
  Sender: FDA-Public Use
  Company Number: HQWYE772018MAY05

PATIENT
  Sex: Male

DRUGS (11)
  1. PANTOPRAZOLE SODIUM [Suspect]
     Dosage: 20 MG 1X PER 1 DAY
  2. ALLOPURINOL [Suspect]
     Dosage: 200 MG 1X PER 1 DAY
  3. BECLOMETHASONE (BECLOMETHASONE,) [Suspect]
  4. DIGOXIN [Suspect]
     Dosage: ^1 TIME (S) PER DAY 250 MG^
  5. FUROSEMIDE [Suspect]
     Dosage: 80 MG 1X PER 1 DAY
  6. ACETAMINOPHEN [Suspect]
  7. PERINDOPRIL (PERINDOPRIL,) [Suspect]
     Dosage: 4 MG 1X PER 1 DAY
  8. SIMVASTATIN [Suspect]
     Dosage: 40 MG 1X PER 1 DAY
  9. SPIRIVA [Suspect]
  10. VENTOLIN [Suspect]
  11. WARFARIN SODIUM [Suspect]

REACTIONS (1)
  - AORTIC DISSECTION [None]
